FAERS Safety Report 22189397 (Version 3)
Quarter: 2023Q2

REPORT INFORMATION
  Report Type: Spontaneous
  Country: CA (occurrence: CA)
  Receive Date: 20230410
  Receipt Date: 20230504
  Transmission Date: 20230722
  Serious: Yes (Other)
  Sender: FDA-Public Use
  Company Number: CA-CELLTRION INC.-2023CA004392

PATIENT

DRUGS (5)
  1. INFLECTRA [Suspect]
     Active Substance: INFLIXIMAB-DYYB
     Indication: Colitis ulcerative
     Dosage: Q 0, 2 , 6 THEN EVERY 8 WEEKS, WEEK 0 DOSE AT HOSPITAL
     Route: 042
     Dates: start: 20221107, end: 20230220
  2. INFLECTRA [Suspect]
     Active Substance: INFLIXIMAB-DYYB
     Dosage: Q 0, 2 , 6 THEN EVERY 8 WEEKS, WEEK 0 DOSE AT HOSPITAL
     Route: 042
     Dates: start: 20221221
  3. INFLECTRA [Suspect]
     Active Substance: INFLIXIMAB-DYYB
     Dosage: Q 0, 2 , 6 THEN EVERY 8 WEEKS, WEEK 0 DOSE AT HOSPITAL
     Route: 042
     Dates: start: 20230220
  4. INFLECTRA [Suspect]
     Active Substance: INFLIXIMAB-DYYB
     Dosage: AFTER 5 WEEKS AND 4 DAYS, EVERY 4 WEEK
     Route: 042
     Dates: start: 20230331, end: 20230412
  5. PREDNISONE [Concomitant]
     Active Substance: PREDNISONE
     Dosage: UNK

REACTIONS (4)
  - Condition aggravated [Recovering/Resolving]
  - Clostridium difficile infection [Not Recovered/Not Resolved]
  - Therapeutic response shortened [Unknown]
  - Off label use [Unknown]

NARRATIVE: CASE EVENT DATE: 20230217
